FAERS Safety Report 20080975 (Version 3)
Quarter: 2022Q1

REPORT INFORMATION
  Report Type: Report from Study
  Country: US (occurrence: US)
  Receive Date: 20211117
  Receipt Date: 20220125
  Transmission Date: 20220423
  Serious: Yes (Other)
  Sender: FDA-Public Use
  Company Number: US-BAYER-2021A234639

PATIENT
  Age: 76 Year
  Sex: Male

DRUGS (2)
  1. STIVARGA [Suspect]
     Active Substance: REGORAFENIB
     Indication: Colon cancer
     Dosage: DAILY DOSE 120 MG FOR 21 DAYS ON, 7 DAY OFF
     Route: 048
     Dates: start: 20211011
  2. XELODA [Concomitant]
     Active Substance: CAPECITABINE
     Dosage: 1000 MG, BID

REACTIONS (22)
  - Haemorrhage [None]
  - Lung operation [None]
  - Dyspnoea [Unknown]
  - Pulmonary pain [None]
  - Neuropathy peripheral [Not Recovered/Not Resolved]
  - Pain in extremity [Not Recovered/Not Resolved]
  - Sensitive skin [Not Recovered/Not Resolved]
  - Blister [Not Recovered/Not Resolved]
  - Pain in extremity [Unknown]
  - Loss of personal independence in daily activities [None]
  - Fatigue [Unknown]
  - Diarrhoea [Recovering/Resolving]
  - Off label use [None]
  - Incorrect product administration duration [None]
  - Product dose omission issue [Unknown]
  - Dry mouth [Unknown]
  - Hypoaesthesia [Not Recovered/Not Resolved]
  - Skin ulcer [Unknown]
  - Gait disturbance [None]
  - Hypoaesthesia [None]
  - Trigger finger [Not Recovered/Not Resolved]
  - Hypoaesthesia [Not Recovered/Not Resolved]

NARRATIVE: CASE EVENT DATE: 20211011
